FAERS Safety Report 11521209 (Version 2)
Quarter: 2015Q4

REPORT INFORMATION
  Report Type: Spontaneous
  Country: US (occurrence: US)
  Receive Date: 20150918
  Receipt Date: 20151117
  Transmission Date: 20160304
  Serious: Yes (Hospitalization)
  Sender: FDA-Public Use
  Company Number: US-MALLINCKRODT-T201503601

PATIENT
  Age: 38 Year
  Sex: Male

DRUGS (4)
  1. GABLOFEN [Suspect]
     Active Substance: BACLOFEN
     Dosage: 750 MCG/DAY
     Route: 037
     Dates: start: 20150723
  2. GABLOFEN [Suspect]
     Active Substance: BACLOFEN
     Dosage: 660 MCG/DAY
     Route: 037
     Dates: end: 20150723
  3. GABLOFEN [Suspect]
     Active Substance: BACLOFEN
     Indication: MUSCLE SPASTICITY
     Dosage: 999 MCG/DAY
     Route: 037
  4. GABLOFEN [Suspect]
     Active Substance: BACLOFEN
     Dosage: 1151.7 MCG/DAY
     Route: 037

REACTIONS (3)
  - Withdrawal syndrome [Recovering/Resolving]
  - General physical condition abnormal [Recovering/Resolving]
  - Mobility decreased [Recovering/Resolving]

NARRATIVE: CASE EVENT DATE: 20150723
